FAERS Safety Report 5698752-6 (Version None)
Quarter: 2008Q2

REPORT INFORMATION
  Report Type: 
  Country: None (occurrence: None)
  Receive Date: 20080408
  Receipt Date: 20070507
  Transmission Date: 20081010
  Serious: No
  Sender: FDA-Public Use
  Company Number: US-BAYER-US-2007-016205

PATIENT
  Age: 51 Year
  Sex: Female
  Weight: 67 kg

DRUGS (3)
  1. CLIMARA [Suspect]
     Indication: HORMONE REPLACEMENT THERAPY
     Route: 062
     Dates: start: 20070405, end: 20070505
  2. NEXIUM [Concomitant]
     Route: 048
  3. CARAFATE [Concomitant]
     Route: 048

REACTIONS (2)
  - INSOMNIA [None]
  - OEDEMA PERIPHERAL [None]
